FAERS Safety Report 16150295 (Version 1)
Quarter: 2019Q2

REPORT INFORMATION
  Report Type: Report from Study
  Country: None (occurrence: RO)
  Receive Date: 20190403
  Receipt Date: 20190403
  Transmission Date: 20190711
  Serious: Yes (Disabling, Other)
  Sender: FDA-Public Use
  Company Number: RO-ABBVIE-19K-135-2673088-00

PATIENT
  Age: 53 Year
  Sex: Male
  Weight: 93 kg

DRUGS (6)
  1. LAGOSA [Concomitant]
     Active Substance: DIETARY SUPPLEMENT\HERBALS\MILK THISTLE
     Indication: PRODUCT USED FOR UNKNOWN INDICATION
  2. DIUREX [Concomitant]
     Indication: PRODUCT USED FOR UNKNOWN INDICATION
     Dosage: 50/20MG
  3. SIMVASTATINA [Concomitant]
     Active Substance: SIMVASTATIN
     Indication: BLOOD CHOLESTEROL INCREASED
     Route: 048
     Dates: start: 2014
  4. HUMIRA [Suspect]
     Active Substance: ADALIMUMAB
     Indication: ANKYLOSING SPONDYLITIS
     Route: 058
     Dates: start: 20140415, end: 20190201
  5. DICLOREUM [Concomitant]
     Active Substance: DICLOFENAC SODIUM
     Indication: ANKYLOSING SPONDYLITIS
     Route: 048
     Dates: start: 2014
  6. CONTROLOC [Concomitant]
     Active Substance: PANTOPRAZOLE SODIUM
     Indication: PROPHYLAXIS
     Route: 048
     Dates: start: 2014

REACTIONS (16)
  - Inflammation [Not Recovered/Not Resolved]
  - Blood creatinine increased [Not Recovered/Not Resolved]
  - Blood cholesterol increased [Recovered/Resolved]
  - Neck pain [Not Recovered/Not Resolved]
  - Back pain [Not Recovered/Not Resolved]
  - Renal cyst [Not Recovered/Not Resolved]
  - Drug ineffective [Not Recovered/Not Resolved]
  - Nephrolithiasis [Not Recovered/Not Resolved]
  - Liver function test increased [Recovering/Resolving]
  - Malaise [Not Recovered/Not Resolved]
  - Red blood cell sedimentation rate increased [Not Recovered/Not Resolved]
  - Oedema peripheral [Recovered/Resolved]
  - C-reactive protein increased [Not Recovered/Not Resolved]
  - Musculoskeletal pain [Not Recovered/Not Resolved]
  - Nephropathy [Not Recovered/Not Resolved]
  - Hepatic steatosis [Not Recovered/Not Resolved]

NARRATIVE: CASE EVENT DATE: 20140604
